FAERS Safety Report 8516818-X (Version None)
Quarter: 2012Q3

REPORT INFORMATION
  Report Type: 
  Country: None (occurrence: None)
  Receive Date: 20120706
  Receipt Date: 20120620
  Transmission Date: 20120928
  Serious: Yes (Other)
  Sender: FDA-Public Use
  Company Number: TPA2012A03156

PATIENT
  Age: 87 Year
  Sex: Female

DRUGS (8)
  1. TORSEMIDE [Concomitant]
  2. BISOPROLOL FUMARATE [Concomitant]
  3. ARLEVERT (CINNARIZINE DIMENHYDRINATE) [Concomitant]
  4. ADENURIC (FEBUXOSTAT) [Suspect]
     Indication: HYPERURICAEMIA
     Dosage: 80 MG (80 MG, 1 IN 1 D) ORAL
     Route: 048
     Dates: start: 20120509, end: 20120523
  5. PANTOPRAZOL (PANTOPRAZOLE SODIUM) [Concomitant]
  6. L-THYROX (LEVOTHYROXINE SODIUM) [Concomitant]
  7. VOCADO HCT (OLMESARTAN MEDOXOMIL) [Concomitant]
  8. ASPIRIN [Concomitant]

REACTIONS (1)
  - ERYTHEMA MULTIFORME [None]
